FAERS Safety Report 4342667-2 (Version None)
Quarter: 2004Q2

REPORT INFORMATION
  Report Type: 
  Country: None (occurrence: None)
  Receive Date: 20040421
  Receipt Date: 20040415
  Transmission Date: 20050107
  Serious: Yes (Other)
  Sender: FDA-Public Use
  Company Number: US-JNJFOC-20040403585

PATIENT
  Age: 76 Year
  Sex: Male

DRUGS (1)
  1. DURAGESIC [Suspect]
     Route: 062
     Dates: start: 19960101

REACTIONS (3)
  - APPLICATION SITE DERMATITIS [None]
  - APPLICATION SITE PRURITUS [None]
  - PROSTATE CANCER [None]
